FAERS Safety Report 23370740 (Version 1)
Quarter: 2024Q1

REPORT INFORMATION
  Report Type: Spontaneous
  Country: US (occurrence: US)
  Receive Date: 20240105
  Receipt Date: 20240105
  Transmission Date: 20240410
  Serious: No
  Sender: FDA-Public Use
  Company Number: US-SA-SAC20240103000136

PATIENT
  Age: 45 Year
  Sex: Female

DRUGS (2)
  1. DUPIXENT [Suspect]
     Active Substance: DUPILUMAB
     Indication: Dermatitis atopic
     Dosage: 300 MG, QOW
     Route: 058
     Dates: start: 202310
  2. NINLARO [Concomitant]
     Active Substance: IXAZOMIB CITRATE
     Indication: Plasma cell myeloma in remission

REACTIONS (3)
  - Paraesthesia [Unknown]
  - Peripheral swelling [Unknown]
  - Burning sensation [Unknown]

NARRATIVE: CASE EVENT DATE: 20230101
